FAERS Safety Report 4747246-0 (Version None)
Quarter: 2005Q3

REPORT INFORMATION
  Report Type: 
  Country: None (occurrence: None)
  Receive Date: 20050815
  Receipt Date: 20050729
  Transmission Date: 20060218
  Serious: Yes (Other)
  Sender: FDA-Public Use
  Company Number: USA0508104240

PATIENT
  Age: 49 Year
  Sex: Male

DRUGS (3)
  1. CYMBALTA [Suspect]
     Dosage: 60 MG
     Dates: end: 20050727
  2. LASIX [Concomitant]
  3. LOTENSIN [Concomitant]

REACTIONS (4)
  - ANURIA [None]
  - BLADDER DISORDER [None]
  - CEREBROVASCULAR ACCIDENT [None]
  - ORGAN FAILURE [None]
